FAERS Safety Report 10831865 (Version 1)
Quarter: 2015Q1

REPORT INFORMATION
  Report Type: Spontaneous
  Country: US (occurrence: US)
  Receive Date: 20150219
  Receipt Date: 20150219
  Transmission Date: 20150721
  Serious: No
  Sender: FDA-Public Use
  Company Number: US-RECKITT BENCKISER PHARMACEUTICAL, INC-RB-73792-2014

PATIENT
  Sex: Female

DRUGS (4)
  1. SUBOXONE [Suspect]
     Active Substance: BUPRENORPHINE HYDROCHLORIDE\NALOXONE HYDROCHLORIDE
     Dosage: QUARTER OF A TABLET, QD, (FOR TWENTY DAYS)
     Route: 051
  2. SUBOXONE [Suspect]
     Active Substance: BUPRENORPHINE HYDROCHLORIDE\NALOXONE HYDROCHLORIDE
     Dosage: QUARTER TWICE A DAY, BID (FOR TWENTY DAYS)
     Route: 051
  3. SUBOXONE [Suspect]
     Active Substance: BUPRENORPHINE HYDROCHLORIDE\NALOXONE HYDROCHLORIDE
     Indication: DRUG DEPENDENCE
     Dosage: 4 TO 6 TABLETS, QD, (FOR 9 MONTTHS)
     Route: 051
  4. SUBOXONE [Suspect]
     Active Substance: BUPRENORPHINE HYDROCHLORIDE\NALOXONE HYDROCHLORIDE
     Dosage: HALF OF AN 8 MG TABLET, BID, (FOR TWENTY DAYS)
     Route: 051

REACTIONS (6)
  - General physical condition abnormal [Not Recovered/Not Resolved]
  - Intentional underdose [Recovered/Resolved]
  - Intentional product misuse [Recovered/Resolved]
  - Extra dose administered [Recovered/Resolved]
  - Pain [Not Recovered/Not Resolved]
  - Wrong technique in drug usage process [Recovered/Resolved]
